FAERS Safety Report 17347353 (Version 1)
Quarter: 2020Q1

REPORT INFORMATION
  Report Type: Spontaneous
  Country: US (occurrence: US)
  Receive Date: 20200114
  Receipt Date: 20200114
  Transmission Date: 20200409
  Serious: Yes (Death, Hospitalization)
  Sender: FDA-Public Use
  Company Number: None

PATIENT
  Age: 18 Year
  Sex: Male
  Weight: 110.5 kg

DRUGS (6)
  1. CYTARABINE. [Suspect]
     Active Substance: CYTARABINE
  2. DAUNORUBICIN [Suspect]
     Active Substance: DAUNORUBICIN
  3. VINCRISTINE SULFATE. [Suspect]
     Active Substance: VINCRISTINE SULFATE
  4. ONCASPAR [Suspect]
     Active Substance: PEGASPARGASE
  5. METHOTREXATE. [Suspect]
     Active Substance: METHOTREXATE
  6. PREDNISOLONE. [Suspect]
     Active Substance: PREDNISOLONE

REACTIONS (11)
  - Lactic acidosis [None]
  - Renal replacement therapy [None]
  - Hepatic failure [None]
  - White blood cell count decreased [None]
  - Acute kidney injury [None]
  - Shock [None]
  - Coagulopathy [None]
  - Pancreatitis acute [None]
  - Multiple organ dysfunction syndrome [None]
  - Metabolic disorder [None]
  - Blood glucose increased [None]

NARRATIVE: CASE EVENT DATE: 20200107
